FAERS Safety Report 15455940 (Version 4)
Quarter: 2019Q1

REPORT INFORMATION
  Report Type: Spontaneous
  Country: PT (occurrence: PT)
  Receive Date: 20181002
  Receipt Date: 20190128
  Transmission Date: 20190417
  Serious: Yes (Other)
  Sender: FDA-Public Use
  Company Number: PT-MYLANLABS-2018M1071290

PATIENT
  Age: 54 Year
  Sex: Male

DRUGS (3)
  1. HYDROCORTISONE. [Suspect]
     Active Substance: HYDROCORTISONE
     Indication: RHEUMATOID ARTHRITIS
     Dosage: 10 MILLIGRAM, QD
     Route: 065
  2. HYDROXYCHLOROQUINE [Concomitant]
     Active Substance: HYDROXYCHLOROQUINE
     Indication: RHEUMATOID ARTHRITIS
     Dosage: 400 MILLIGRAM, QD
     Route: 065
  3. METHOTREXATE. [Suspect]
     Active Substance: METHOTREXATE
     Indication: RHEUMATOID ARTHRITIS
     Dosage: 12.5 MILLIGRAM, QW
     Route: 065

REACTIONS (8)
  - Dysarthria [Recovering/Resolving]
  - Ischaemic stroke [Recovering/Resolving]
  - CSF oligoclonal band present [Recovering/Resolving]
  - Cerebral ischaemia [Recovering/Resolving]
  - Hemiparesis [Recovering/Resolving]
  - Vasculitis [Recovering/Resolving]
  - Infarction [Recovering/Resolving]
  - Eye movement disorder [Recovering/Resolving]
